FAERS Safety Report 11377721 (Version 1)
Quarter: 2015Q3

REPORT INFORMATION
  Report Type: Spontaneous
  Country: US (occurrence: US)
  Receive Date: 20150811
  Receipt Date: 20150811
  Transmission Date: 20151125
  Serious: No
  Sender: FDA-Public Use
  Company Number: US-ELI_LILLY_AND_COMPANY-US200906001311

PATIENT
  Age: 59 Year
  Sex: Female

DRUGS (1)
  1. HUMULIN R [Suspect]
     Active Substance: INSULIN HUMAN
     Indication: DIABETES MELLITUS
     Dosage: 20 U, 2/D

REACTIONS (4)
  - Panic attack [Unknown]
  - Anxiety [Recovering/Resolving]
  - Crying [Unknown]
  - Dysarthria [Unknown]

NARRATIVE: CASE EVENT DATE: 200906
